FAERS Safety Report 8801278 (Version 2)
Quarter: 2012Q4

REPORT INFORMATION
  Report Type: 
  Country: US (occurrence: US)
  Receive Date: 20120921
  Receipt Date: 20121023
  Transmission Date: 20130627
  Serious: No
  Sender: FDA-Public Use
  Company Number: US-BAYER-2012-098044

PATIENT
  Age: 37 Year
  Sex: Female

DRUGS (1)
  1. MIRENA [Suspect]
     Indication: MENORRHAGIA
     Dosage: 20 mcg/24hr, CONT
     Route: 015
     Dates: start: 20120911, end: 20120913

REACTIONS (10)
  - Nausea [None]
  - Headache [Recovered/Resolved]
  - Dizziness [None]
  - Muscle spasms [Recovered/Resolved]
  - Oedema peripheral [None]
  - Hyperhidrosis [Recovered/Resolved]
  - Pain [Recovered/Resolved]
  - Abdominal pain lower [Recovered/Resolved]
  - Arthralgia [None]
  - Paraesthesia [None]
